FAERS Safety Report 6120626-7 (Version None)
Quarter: 2009Q1

REPORT INFORMATION
  Report Type: 
  Country: None (occurrence: None)
  Receive Date: 20090317
  Receipt Date: 20090306
  Transmission Date: 20090719
  Serious: Yes (Death, Hospitalization)
  Sender: FDA-Public Use
  Company Number: ES-WYE-H08483809

PATIENT
  Age: 58 Year
  Sex: Male

DRUGS (4)
  1. METHOTREXATE [Interacting]
     Indication: CENTRAL NERVOUS SYSTEM LYMPHOMA
     Dosage: 2.5 G/M^2 EVERY 3 HR
  2. PIPERACILLIN SODIUM AND TAZOBACTAM SODIUM [Suspect]
     Indication: PYREXIA
     Dosage: 4 G/500MG EVERY 6 HR
     Route: 042
  3. PIPERACILLIN SODIUM AND TAZOBACTAM SODIUM [Interacting]
     Indication: EVIDENCE BASED TREATMENT
  4. LEUCOVORIN CALCIUM [Concomitant]
     Dosage: 60 MG THEN 30 MG Q 6HR UNTIL SERUM MTX LEVEL BELOW 0.1UMOL/L
     Route: 042

REACTIONS (6)
  - BONE MARROW FAILURE [None]
  - DRUG INTERACTION [None]
  - MUCOSAL INFLAMMATION [None]
  - PYREXIA [None]
  - RENAL FAILURE ACUTE [None]
  - SEPSIS [None]
